FAERS Safety Report 10080836 (Version 3)
Quarter: 2015Q1

REPORT INFORMATION
  Report Type: Spontaneous
  Country: US (occurrence: US)
  Receive Date: 20140416
  Receipt Date: 20150106
  Transmission Date: 20150720
  Serious: Yes (Other)
  Sender: FDA-Public Use
  Company Number: US-BAYER-2014-054903

PATIENT
  Age: 27 Year
  Sex: Female
  Weight: 95.24 kg

DRUGS (2)
  1. YAZ [Suspect]
     Active Substance: DROSPIRENONE\ETHINYL ESTRADIOL
     Indication: PREMENSTRUAL SYNDROME
     Dosage: UNK
     Dates: start: 2006, end: 2009
  2. YASMIN [Suspect]
     Active Substance: DROSPIRENONE\ETHINYL ESTRADIOL
     Indication: PREMENSTRUAL SYNDROME
     Dosage: UNK
     Dates: start: 2006, end: 2009

REACTIONS (10)
  - Injury [None]
  - Schizophrenia [None]
  - Pulmonary embolism [None]
  - Deep vein thrombosis [None]
  - Cerebrovascular accident [None]
  - Cardiac operation [None]
  - Thrombosis [None]
  - Bipolar disorder [None]
  - Emotional distress [None]
  - Pain [None]

NARRATIVE: CASE EVENT DATE: 2010
